FAERS Safety Report 6856197-7 (Version None)
Quarter: 2010Q3

REPORT INFORMATION
  Report Type: 
  Country: None (occurrence: None)
  Receive Date: 20100719
  Receipt Date: 20100707
  Transmission Date: 20110219
  Serious: Yes (Death, Other)
  Sender: FDA-Public Use
  Company Number: BR-GENZYME-CLOF-1001054

PATIENT
  Sex: Male

DRUGS (2)
  1. CLOLAR [Suspect]
     Indication: LEUKAEMIA
     Dosage: 52 MG/M2, QDX5
     Route: 042
  2. METHYLPREDNISOLONE [Suspect]
     Indication: LEUKAEMIA
     Dosage: 1 MG/KG, UNK

REACTIONS (6)
  - BLAST CELL CRISIS [None]
  - BONE MARROW FAILURE [None]
  - FUNGAL SEPSIS [None]
  - PNEUMONIA [None]
  - RESPIRATORY FAILURE [None]
  - SPLENOMEGALY [None]
